FAERS Safety Report 8025253-2 (Version None)
Quarter: 2012Q1

REPORT INFORMATION
  Report Type: 
  Country: None (occurrence: None)
  Receive Date: 20120105
  Receipt Date: 20120103
  Transmission Date: 20120608
  Serious: No
  Sender: FDA-Public Use
  Company Number: US-PFIZER INC-2011030621

PATIENT
  Sex: Male
  Weight: 92.971 kg

DRUGS (3)
  1. LIPITOR [Suspect]
     Dosage: UNK
     Dates: start: 20111201
  2. LIPITOR [Suspect]
     Indication: CARDIAC OPERATION
     Dosage: 10 MG, DAILY
  3. METFORMIN [Concomitant]
     Indication: DIABETES MELLITUS
     Dosage: 1000 MG, UNK

REACTIONS (2)
  - PAIN IN EXTREMITY [None]
  - MUSCULOSKELETAL PAIN [None]
